FAERS Safety Report 19121100 (Version 1)
Quarter: 2021Q2

REPORT INFORMATION
  Report Type: Spontaneous
  Country: JP (occurrence: JP)
  Receive Date: 20210412
  Receipt Date: 20210412
  Transmission Date: 20210717
  Serious: Yes (Other)
  Sender: FDA-Public Use
  Company Number: JP-MYLANLABS-2021M1020824

PATIENT
  Age: 86 Year
  Sex: Female

DRUGS (5)
  1. PREDNISOLONE. [Suspect]
     Active Substance: PREDNISOLONE
     Indication: RHEUMATOID ARTHRITIS
     Dosage: 3.5 MILLIGRAM, QD, STARTED THREE YEARS PRIOR TO PRESENTATION
     Route: 065
  2. IGURATIMOD [Suspect]
     Active Substance: IGURATIMOD
     Indication: RHEUMATOID ARTHRITIS
     Dosage: 50 MILLIGRAM, QD, STARTED TWO YEARS PRIOR TO PRESENTATION
     Route: 065
  3. VONOPRAZAN [Interacting]
     Active Substance: VONOPRAZAN
     Indication: PRODUCT USED FOR UNKNOWN INDICATION
     Dosage: 20 MILLIGRAM, QD
     Route: 065
  4. FOLIC ACID. [Concomitant]
     Active Substance: FOLIC ACID
     Indication: RHEUMATOID ARTHRITIS
     Dosage: 10 MILLIGRAM, QW
     Route: 065
  5. METHOTREXATE. [Interacting]
     Active Substance: METHOTREXATE
     Indication: RHEUMATOID ARTHRITIS
     Dosage: 8 MILLIGRAM, QW, STARTED THREE YEARS PRIOR TO PRESENTATION
     Route: 065

REACTIONS (5)
  - Gastric ulcer [Recovering/Resolving]
  - Drug interaction [Unknown]
  - Stomatitis [Recovered/Resolved]
  - Impaired healing [Recovering/Resolving]
  - Decreased appetite [Recovering/Resolving]
